FAERS Safety Report 11759295 (Version 1)
Quarter: 2015Q4

REPORT INFORMATION
  Report Type: Spontaneous
  Country: US (occurrence: None)
  Receive Date: 20151119
  Receipt Date: 20151119
  Transmission Date: 20160304
  Serious: Yes (Other)
  Sender: FDA-Public Use
  Company Number: None

PATIENT
  Age: 59 Year
  Sex: Female
  Weight: 58.97 kg

DRUGS (3)
  1. SYNTHROID [Concomitant]
     Active Substance: LEVOTHYROXINE SODIUM
  2. LEVOFLOXACINE [Suspect]
     Active Substance: LEVOFLOXACIN
     Indication: ASTHMA
     Dosage: 1 PILL
     Route: 048
     Dates: start: 20151107, end: 20151113
  3. ACIDOPHILUS [Concomitant]
     Active Substance: LACTOBACILLUS ACIDOPHILUS

REACTIONS (9)
  - Dyspnoea [None]
  - Tendon pain [None]
  - Myalgia [None]
  - Ageusia [None]
  - Panic attack [None]
  - Palpitations [None]
  - Insomnia [None]
  - Presyncope [None]
  - Anosmia [None]

NARRATIVE: CASE EVENT DATE: 20151107
